FAERS Safety Report 20585910 (Version 1)
Quarter: 2022Q1

REPORT INFORMATION
  Report Type: Spontaneous
  Country: FR (occurrence: FR)
  Receive Date: 20220312
  Receipt Date: 20220312
  Transmission Date: 20220423
  Serious: Yes (Other)
  Sender: FDA-Public Use
  Company Number: FR-ABBVIE-22K-056-4312173-00

PATIENT
  Sex: Female

DRUGS (6)
  1. VALPROATE SODIUM [Suspect]
     Active Substance: VALPROATE SODIUM
     Indication: Epilepsy
     Route: 048
     Dates: start: 200203, end: 200208
  2. VALPROATE SODIUM [Suspect]
     Active Substance: VALPROATE SODIUM
     Indication: Epilepsy
     Route: 065
     Dates: start: 1990, end: 20020408
  3. VALPROATE SODIUM [Suspect]
     Active Substance: VALPROATE SODIUM
     Route: 065
     Dates: start: 20020408
  4. VALPROATE SODIUM [Suspect]
     Active Substance: VALPROATE SODIUM
     Route: 065
     Dates: start: 200208, end: 200210
  5. LAMICTAL [Concomitant]
     Active Substance: LAMOTRIGINE
     Indication: Product used for unknown indication
     Dates: start: 200204
  6. CLOBAZAM [Concomitant]
     Active Substance: CLOBAZAM
     Indication: Product used for unknown indication

REACTIONS (3)
  - Iatrogenic metastasis [Unknown]
  - Treatment noncompliance [Unknown]
  - Epilepsy [Unknown]

NARRATIVE: CASE EVENT DATE: 20020301
